FAERS Safety Report 22206057 (Version 5)
Quarter: 2023Q2

REPORT INFORMATION
  Report Type: Report from Study
  Country: US (occurrence: US)
  Receive Date: 20230413
  Receipt Date: 20230628
  Transmission Date: 20230722
  Serious: No
  Sender: FDA-Public Use
  Company Number: US-002147023-NVSC2023US085057

PATIENT
  Sex: Female

DRUGS (1)
  1. KESIMPTA [Suspect]
     Active Substance: OFATUMUMAB
     Indication: Product used for unknown indication
     Dosage: UNK
     Route: 065

REACTIONS (9)
  - Oropharyngeal discomfort [Unknown]
  - Dysphagia [Unknown]
  - Panic attack [Unknown]
  - HCoV-NL63 infection [Unknown]
  - Influenza like illness [Unknown]
  - Oropharyngeal pain [Unknown]
  - Myalgia [Unknown]
  - Nasopharyngitis [Unknown]
  - Headache [Unknown]
